FAERS Safety Report 21528555 (Version 1)
Quarter: 2022Q4

REPORT INFORMATION
  Report Type: Report from Study
  Country: RO (occurrence: RO)
  Receive Date: 20221031
  Receipt Date: 20221031
  Transmission Date: 20230112
  Serious: Yes (Hospitalization)
  Sender: FDA-Public Use
  Company Number: RO-NOVARTISPH-NVSC2022RO243448

PATIENT
  Age: 42 Year
  Sex: Female

DRUGS (1)
  1. CIPROFLOXACIN [Suspect]
     Active Substance: CIPROFLOXACIN
     Indication: Product used for unknown indication
     Dosage: UNK, Q3H (2 DOSES AT 3-HOUR INTERVALS )
     Route: 065

REACTIONS (2)
  - Illness [Unknown]
  - Vertigo [Unknown]
